FAERS Safety Report 16676729 (Version 1)
Quarter: 2019Q3

REPORT INFORMATION
  Report Type: Spontaneous
  Country: US (occurrence: US)
  Receive Date: 20190807
  Receipt Date: 20190807
  Transmission Date: 20191004
  Serious: No
  Sender: FDA-Public Use
  Company Number: US-ASTRAZENECA-2019SE99250

PATIENT
  Sex: Female

DRUGS (3)
  1. DOXYCYCLINE HYCLATE. [Concomitant]
     Active Substance: DOXYCYCLINE HYCLATE
  2. FARXIGA [Suspect]
     Active Substance: DAPAGLIFLOZIN PROPANEDIOL
     Route: 048
  3. HYDROCORTISONE. [Concomitant]
     Active Substance: HYDROCORTISONE

REACTIONS (20)
  - Depression [Unknown]
  - Swelling [Unknown]
  - Irritability [Unknown]
  - Sense of oppression [Unknown]
  - Malaise [Unknown]
  - Asthenia [Unknown]
  - Insomnia [Unknown]
  - Discomfort [Unknown]
  - Mood altered [Unknown]
  - Personality change [Unknown]
  - Fatigue [Unknown]
  - Inflammation [Unknown]
  - Rash erythematous [Unknown]
  - Fluid retention [Unknown]
  - Skin exfoliation [Unknown]
  - Bacterial infection [Unknown]
  - Pain [Unknown]
  - Aggression [Unknown]
  - Impatience [Unknown]
  - Disturbance in attention [Unknown]
